FAERS Safety Report 13306082 (Version 1)
Quarter: 2017Q1

REPORT INFORMATION
  Report Type: Spontaneous
  Country: JP (occurrence: JP)
  Receive Date: 20170308
  Receipt Date: 20170308
  Transmission Date: 20170428
  Serious: Yes (Hospitalization)
  Sender: FDA-Public Use
  Company Number: PHJP2017JP005981

PATIENT
  Age: 73 Year
  Sex: Male

DRUGS (1)
  1. REVOLADE TAB [Suspect]
     Active Substance: ELTROMBOPAG
     Indication: PRODUCT USED FOR UNKNOWN INDICATION
     Dosage: 12.5 MG, TWICE WEEKLY
     Route: 048
     Dates: start: 20110621

REACTIONS (1)
  - Lacunar infarction [Unknown]

NARRATIVE: CASE EVENT DATE: 20170212
